FAERS Safety Report 7097356-0 (Version None)
Quarter: 2010Q4

REPORT INFORMATION
  Report Type: 
  Country: None (occurrence: None)
  Receive Date: 20101111
  Receipt Date: 20101111
  Transmission Date: 20110411
  Serious: Yes (Life-Threatening, Hospitalization)
  Sender: FDA-Public Use
  Company Number: CH-PFIZER INC-2010145416

PATIENT
  Sex: Female

DRUGS (3)
  1. XANAX [Suspect]
     Indication: ANXIETY DISORDER
     Dosage: 4 MG DAILY
     Route: 064
     Dates: start: 20100101, end: 20101020
  2. FENTANYL [Suspect]
     Indication: PELVIC PAIN
     Dosage: 2X/DAY DAILY DOSE 150 UG
     Route: 064
     Dates: start: 20101021, end: 20101021
  3. FENTANYL [Suspect]
     Indication: ABDOMINAL PAIN

REACTIONS (4)
  - DRUG EXPOSURE DURING PREGNANCY [None]
  - DRUG WITHDRAWAL SYNDROME NEONATAL [None]
  - NEONATAL RESPIRATORY DISTRESS SYNDROME [None]
  - PNEUMOTHORAX [None]
